FAERS Safety Report 10483721 (Version 1)
Quarter: 2014Q3

REPORT INFORMATION
  Report Type: Spontaneous
  Country: US (occurrence: US)
  Receive Date: 20140930
  Receipt Date: 20140930
  Transmission Date: 20150326
  Serious: Yes (Other)
  Sender: FDA-Public Use
  Company Number: US-BAYER-2014-141688

PATIENT
  Age: 48 Year
  Sex: Female

DRUGS (1)
  1. BETASERON [Suspect]
     Active Substance: INTERFERON BETA-1B
     Indication: MULTIPLE SCLEROSIS
     Dosage: 0.25 MG, UNK
     Dates: start: 201207

REACTIONS (7)
  - Hepatic enzyme increased [None]
  - Hepatic steatosis [None]
  - Polyp [None]
  - Palpitations [None]
  - Nausea [None]
  - Pyrexia [None]
  - Malignant melanoma [None]
